FAERS Safety Report 20174123 (Version 1)
Quarter: 2021Q4

REPORT INFORMATION
  Report Type: Spontaneous
  Country: US (occurrence: US)
  Receive Date: 20211213
  Receipt Date: 20211213
  Transmission Date: 20220303
  Serious: No
  Sender: FDA-Public Use
  Company Number: US-TEVA-2021-US-1984429

PATIENT
  Age: 66 Year
  Sex: Female
  Weight: 63.4 kg

DRUGS (21)
  1. AUSTEDO [Suspect]
     Active Substance: DEUTETRABENAZINE
     Route: 065
     Dates: start: 20201012
  2. AUSTEDO [Suspect]
     Active Substance: DEUTETRABENAZINE
     Route: 065
  3. AUSTEDO [Suspect]
     Active Substance: DEUTETRABENAZINE
     Route: 065
     Dates: start: 20210810
  4. LIPITOR [Concomitant]
     Active Substance: ATORVASTATIN CALCIUM
     Dosage: 10 MG PER DAY
  5. ERYTHROMYCIN [Concomitant]
     Active Substance: ERYTHROMYCIN
     Dosage: EVERY MONDAY, WEDNESDAY, AND FRIDAY
  6. CALCIUM [Concomitant]
     Active Substance: CALCIUM
  7. VITAMIN D [Concomitant]
     Active Substance: VITAMIN D NOS
  8. VITAMINS [Concomitant]
     Active Substance: VITAMINS
  9. ZYRTEC [Concomitant]
     Active Substance: CETIRIZINE HYDROCHLORIDE
  10. DAPSONE [Concomitant]
     Active Substance: DAPSONE
     Dosage: 100 MG PER DAY
  11. GABAPENTIN [Concomitant]
     Active Substance: GABAPENTIN
     Dosage: ONE CAPSULE AT BREAKFAST, ONE AT LUNCH, THREE AT BEDTIME
  12. INSULIN LISPRO [Concomitant]
     Active Substance: INSULIN LISPRO
  13. insulin (Lantus SoloStar) [Concomitant]
     Dosage: 8 UNITS EVERY MORNING
  14. MAGNESIUM [Concomitant]
     Active Substance: MAGNESIUM
  15. MIDODRINE [Concomitant]
     Active Substance: MIDODRINE
     Indication: Blood pressure measurement
     Dosage: PRN
  16. CELLCEPT [Concomitant]
     Active Substance: MYCOPHENOLATE MOFETIL
  17. PROTONIX [Concomitant]
     Active Substance: PANTOPRAZOLE SODIUM
     Dosage: 40 MG PER DAY
  18. PREDNISONE [Concomitant]
     Active Substance: PREDNISONE
     Dosage: 10 MG PER DAY
  19. SENNA [Concomitant]
     Active Substance: SENNA LEAF\SENNOSIDES\SENNOSIDES A AND B
     Indication: Constipation
     Dosage: PRN
  20. BACTRIM [Concomitant]
     Active Substance: SULFAMETHOXAZOLE\TRIMETHOPRIM
     Dosage: 400/80 MG EVERY MONDAY, WEDNESDAY, AND FRIDAY
  21. PROGRAF [Concomitant]
     Active Substance: TACROLIMUS
     Dosage: 5 CAPSULES IN THE MORNING AND 5 IN THE EVENING

REACTIONS (2)
  - Dyskinesia [Recovered/Resolved]
  - Protrusion tongue [Recovered/Resolved]

NARRATIVE: CASE EVENT DATE: 20210810
